FAERS Safety Report 14258163 (Version 3)
Quarter: 2018Q2

REPORT INFORMATION
  Report Type: Spontaneous
  Country: US (occurrence: US)
  Receive Date: 20171207
  Receipt Date: 20180422
  Transmission Date: 20180711
  Serious: No
  Sender: FDA-Public Use
  Company Number: US-APOTEX-2017AP019197

PATIENT
  Sex: Female

DRUGS (4)
  1. FENTANYL. [Suspect]
     Active Substance: FENTANYL
     Dosage: 75 MG, UNK
     Route: 062
  2. FENTANYL. [Suspect]
     Active Substance: FENTANYL
     Indication: PAIN
     Dosage: 12.5 MG, UNK
     Route: 062
     Dates: start: 20170907
  3. FENTANYL. [Suspect]
     Active Substance: FENTANYL
     Dosage: 25 MG, UNK
     Route: 062
  4. FENTANYL. [Suspect]
     Active Substance: FENTANYL
     Dosage: 50 MG, UNK
     Route: 062

REACTIONS (4)
  - Product substitution issue [Unknown]
  - Product adhesion issue [Unknown]
  - Vomiting [Unknown]
  - Drug ineffective [Unknown]
